FAERS Safety Report 9698034 (Version 1)
Quarter: 2013Q4

REPORT INFORMATION
  Report Type: Spontaneous
  Country: AT (occurrence: AT)
  Receive Date: 20131120
  Receipt Date: 20131120
  Transmission Date: 20140711
  Serious: Yes (Other)
  Sender: FDA-Public Use
  Company Number: PHHY2013AT131056

PATIENT
  Age: 40 Year
  Sex: Female

DRUGS (3)
  1. AZATHIOPRINE [Suspect]
     Dosage: 37.5 MG, UNK
  2. PREDNISOLONE [Suspect]
     Dosage: 5 MG, UNK
  3. 6-MERCAPTOPURINE [Suspect]

REACTIONS (3)
  - Haematochezia [Not Recovered/Not Resolved]
  - Alopecia [Unknown]
  - Drug effect incomplete [Unknown]
